FAERS Safety Report 5602432-2 (Version None)
Quarter: 2008Q1

REPORT INFORMATION
  Report Type: 
  Country: None (occurrence: None)
  Receive Date: 20080125
  Receipt Date: 20080111
  Transmission Date: 20080703
  Serious: Yes (Hospitalization)
  Sender: FDA-Public Use
  Company Number: US-ELI_LILLY_AND_COMPANY-US200801002474

PATIENT
  Age: 51 Year
  Sex: Female

DRUGS (4)
  1. CYMBALTA [Suspect]
     Dosage: 1 D/F, UNK
     Dates: start: 20070101
  2. WELLBUTRIN XL [Concomitant]
  3. WELLBUTRIN SR [Concomitant]
  4. SERZONE [Concomitant]

REACTIONS (1)
  - GASTRIC BYPASS [None]
